FAERS Safety Report 4316379-5 (Version None)
Quarter: 2004Q1

REPORT INFORMATION
  Report Type: 
  Country: None (occurrence: None)
  Receive Date: 20040312
  Receipt Date: 20040312
  Transmission Date: 20041129
  Serious: Yes (Hospitalization)
  Sender: FDA-Public Use
  Company Number: None

PATIENT
  Sex: Female

DRUGS (4)
  1. TAXOL [Suspect]
     Indication: PANCREATIC DISORDER
     Dosage: 40 MG/M2 IV Q WK X6
     Route: 042
     Dates: start: 20030218, end: 20040224
  2. GEMZAR [Suspect]
     Dosage: 75 MG/M2 IV Q WK X 6
     Route: 042
     Dates: start: 20040218
  3. GEMZAR [Suspect]
     Dosage: 75 MG/M2 IV Q WK X 6
     Route: 042
     Dates: start: 20040224
  4. TARCEVA [Suspect]
     Dosage: 75 MMG/DAY/9 WKS
     Dates: start: 20040301

REACTIONS (4)
  - DEHYDRATION [None]
  - DIARRHOEA [None]
  - FAECES DISCOLOURED [None]
  - RASH [None]
